FAERS Safety Report 10838451 (Version 3)
Quarter: 2015Q2

REPORT INFORMATION
  Report Type: Spontaneous
  Country: US (occurrence: None)
  Receive Date: 20150218
  Receipt Date: 20150410
  Transmission Date: 20150821
  Serious: Yes (Hospitalization)
  Sender: FDA-Public Use
  Company Number: 2015TASUS000696

PATIENT
  Age: 63 Year
  Sex: Male
  Weight: 88 kg

DRUGS (9)
  1. FOLIC ACID. [Concomitant]
     Active Substance: FOLIC ACID
  2. RAMIPRIL. [Concomitant]
     Active Substance: RAMIPRIL
  3. HETLIOZ [Suspect]
     Active Substance: TASIMELTEON
     Indication: CIRCADIAN RHYTHM SLEEP DISORDER
     Route: 048
     Dates: start: 2013, end: 201502
  4. HUMULIN R (INSULIN HUMAN) [Concomitant]
  5. SULFASALAZINE. [Concomitant]
     Active Substance: SULFASALAZINE
  6. LEVEMIR [Concomitant]
     Active Substance: INSULIN DETEMIR
  7. HYDROXYCHLOROQUINE (HYDROXYCHLOROQUINE SULFATE) [Concomitant]
  8. SIMVASTATIN. [Concomitant]
     Active Substance: SIMVASTATIN
  9. METHOTREXATE [Concomitant]
     Active Substance: METHOTREXATE

REACTIONS (3)
  - Blood glucose increased [None]
  - Ketoacidosis [None]
  - Drug dose omission [None]

NARRATIVE: CASE EVENT DATE: 20150203
